FAERS Safety Report 8282242-0 (Version None)
Quarter: 2012Q2

REPORT INFORMATION
  Report Type: 
  Country: None (occurrence: None)
  Receive Date: 20120413
  Receipt Date: 20120404
  Transmission Date: 20120825
  Serious: Yes (Other)
  Sender: FDA-Public Use
  Company Number: US-BAYER-2012-033455

PATIENT
  Age: 27 Year
  Sex: Female

DRUGS (5)
  1. ASPIRIN [Suspect]
     Indication: ARTHRITIS
     Dosage: 2 DF, ONCE
     Route: 048
     Dates: start: 20120403
  2. SEROQUEL [Concomitant]
  3. GABAPENTIN [Concomitant]
  4. IBUPROFEN [Concomitant]
     Dosage: 800 MG, UNK
  5. OXAPROZIN [Concomitant]

REACTIONS (3)
  - ASTHENIA [None]
  - FEELING HOT [None]
  - MOBILITY DECREASED [None]
